FAERS Safety Report 9442909 (Version 1)
Quarter: 2013Q3

REPORT INFORMATION
  Report Type: Spontaneous
  Country: FR (occurrence: FR)
  Receive Date: 20130806
  Receipt Date: 20130806
  Transmission Date: 20140515
  Serious: Yes (Hospitalization)
  Sender: FDA-Public Use
  Company Number: FR-ROCHE-1257554

PATIENT
  Age: 25 Year
  Sex: Male

DRUGS (3)
  1. ROCEPHINE [Suspect]
     Indication: PYELONEPHRITIS
     Route: 042
     Dates: start: 20120718, end: 20120723
  2. OFLOCET (FRANCE) [Suspect]
     Indication: PRODUCT USED FOR UNKNOWN INDICATION
     Route: 042
     Dates: start: 20120719, end: 20120722
  3. AMOXICILLINE [Concomitant]

REACTIONS (1)
  - Drug-induced liver injury [Recovering/Resolving]
